FAERS Safety Report 11241937 (Version 1)
Quarter: 2015Q3

REPORT INFORMATION
  Report Type: Other
  Country: DE (occurrence: DE)
  Receive Date: 20150706
  Receipt Date: 20150706
  Transmission Date: 20151125
  Serious: Yes (Other)
  Sender: FDA-Public Use
  Company Number: DE-MYLANLABS-2015M1021123

PATIENT

DRUGS (5)
  1. AMLODIPINE [Suspect]
     Active Substance: AMLODIPINE BESYLATE
     Indication: PULMONARY ARTERIAL HYPERTENSION
     Dosage: 1.25 MG, BID (2.5 [MG/D ])
     Route: 048
     Dates: start: 20131004, end: 20140626
  2. IMIDIN                             /00109602/ [Concomitant]
     Indication: PRODUCT USED FOR UNKNOWN INDICATION
     Dosage: UNK (AT NIGHT)
     Route: 045
     Dates: start: 20140505, end: 20140505
  3. SILDENAFIL. [Suspect]
     Active Substance: SILDENAFIL
     Indication: PULMONARY ARTERIAL HYPERTENSION
     Dosage: 20 MG, TID (60 [MG/D ])
     Route: 048
     Dates: start: 20131004, end: 20140626
  4. CELESTAN                           /00008501/ [Concomitant]
     Indication: MATERNAL THERAPY TO ENHANCE FOETAL LUNG MATURITY
     Dosage: 12 MG, QD (12 [MG/D ])
     Route: 065
     Dates: start: 20140514, end: 20140515
  5. NEOVIN [Concomitant]
     Indication: PROPHYLAXIS OF NEURAL TUBE DEFECT
     Dosage: 0.4 [MG/D ]
     Route: 048

REACTIONS (3)
  - Foetal growth restriction [Recovered/Resolved]
  - Exposure during pregnancy [Unknown]
  - Oligohydramnios [Recovered/Resolved]
